FAERS Safety Report 16733120 (Version 2)
Quarter: 2020Q3

REPORT INFORMATION
  Report Type: Spontaneous
  Country: IT (occurrence: IT)
  Receive Date: 20190823
  Receipt Date: 20200821
  Transmission Date: 20201102
  Serious: Yes (Other)
  Sender: FDA-Public Use
  Company Number: IT-LUPIN PHARMACEUTICALS INC.-2019-05351

PATIENT
  Sex: Male
  Weight: 1.44 kg

DRUGS (2)
  1. SILDENAFIL. [Suspect]
     Active Substance: SILDENAFIL
     Dosage: 2 MILLIGRAM/KILOGRAM, QID
     Route: 048
  2. SILDENAFIL. [Suspect]
     Active Substance: SILDENAFIL
     Indication: PULMONARY HYPERTENSION
     Dosage: 1 MILLIGRAM/KILOGRAM, QID
     Route: 048

REACTIONS (1)
  - Rectal haemorrhage [Recovered/Resolved]
